FAERS Safety Report 5973075-6 (Version None)
Quarter: 2008Q4

REPORT INFORMATION
  Report Type: 
  Country: None (occurrence: None)
  Receive Date: 20081201
  Receipt Date: 20081121
  Transmission Date: 20090506
  Serious: Yes (Hospitalization)
  Sender: FDA-Public Use
  Company Number: IE-ABBOTT-08P-229-0471916-00

PATIENT
  Sex: Male
  Weight: 60 kg

DRUGS (4)
  1. HUMIRA [Suspect]
     Indication: CROHN'S DISEASE
     Route: 058
     Dates: start: 20080711, end: 20080711
  2. HUMIRA [Suspect]
     Route: 058
     Dates: end: 20080808
  3. ROSUVASTATIN [Concomitant]
     Indication: DRUG USE FOR UNKNOWN INDICATION
  4. OMEPRAZOLE SODIUM [Concomitant]
     Indication: DRUG USE FOR UNKNOWN INDICATION

REACTIONS (3)
  - DIARRHOEA [None]
  - RECTAL TENESMUS [None]
  - WEIGHT DECREASED [None]
